FAERS Safety Report 21423721 (Version 1)
Quarter: 2022Q4

REPORT INFORMATION
  Report Type: Spontaneous
  Country: US (occurrence: None)
  Receive Date: 20221007
  Receipt Date: 20221007
  Transmission Date: 20230113
  Serious: Yes (Disabling)
  Sender: FDA-Public Use
  Company Number: None

PATIENT
  Age: 49 Year
  Sex: Female
  Weight: 49.5 kg

DRUGS (1)
  1. PRILOSEC [Suspect]
     Active Substance: OMEPRAZOLE MAGNESIUM

REACTIONS (5)
  - Abdominal pain [None]
  - Abdominal pain upper [None]
  - Feeling abnormal [None]
  - Gastrooesophageal reflux disease [None]
  - Gastric pH decreased [None]

NARRATIVE: CASE EVENT DATE: 20220730
